FAERS Safety Report 8412123-0 (Version None)
Quarter: 2012Q2

REPORT INFORMATION
  Report Type: 
  Country: None (occurrence: None)
  Receive Date: 20120605
  Receipt Date: 20120509
  Transmission Date: 20120825
  Serious: No
  Sender: FDA-Public Use
  Company Number: US-AMGEN-USASP2012015052

PATIENT
  Age: 55 Year
  Sex: Female
  Weight: 83.9 kg

DRUGS (5)
  1. ERGOCALCIFEROL [Concomitant]
     Indication: VITAMIN D DEFICIENCY
     Dosage: 50000 IU, QWK/OFF AND ON PRN
     Route: 048
  2. ENBREL [Suspect]
     Indication: RHEUMATOID ARTHRITIS
     Dosage: 50 MG, QWK
     Route: 058
     Dates: start: 20070424
  3. DICLOFENAC SODIUM [Concomitant]
     Indication: RHEUMATOID ARTHRITIS
     Dosage: 75 MG, BID, PRN
     Dates: start: 20090101
  4. PAXIL [Concomitant]
     Indication: DEPRESSION
     Dosage: 20 MG, QID
     Route: 048
     Dates: start: 20090101
  5. METHOTREXATE [Concomitant]
     Indication: RHEUMATOID ARTHRITIS
     Dosage: 12.5 MG, QWK
     Route: 048
     Dates: start: 20090101

REACTIONS (4)
  - SKIN SWELLING [None]
  - SKIN EXFOLIATION [None]
  - SKIN FISSURES [None]
  - NODULE [None]
